FAERS Safety Report 21810768 (Version 1)
Quarter: 2023Q1

REPORT INFORMATION
  Report Type: Spontaneous
  Country: US (occurrence: None)
  Receive Date: 20230101
  Receipt Date: 20230101
  Transmission Date: 20230418
  Serious: Yes (Disabling)
  Sender: FDA-Public Use
  Company Number: None

PATIENT
  Age: 76 Year
  Sex: Male
  Weight: 67.5 kg

DRUGS (2)
  1. REFRESH DIGITAL PF [Suspect]
     Active Substance: CARBOXYMETHYLCELLULOSE SODIUM\GLYCERIN\POLYSORBATE 80
     Indication: Dry eye
     Dates: start: 20221223, end: 20221223
  2. multi vitamin mineral [Concomitant]

REACTIONS (1)
  - Keratitis [None]

NARRATIVE: CASE EVENT DATE: 20221223
